FAERS Safety Report 11024336 (Version 1)
Quarter: 2015Q2

REPORT INFORMATION
  Report Type: Spontaneous
  Country: US (occurrence: US)
  Receive Date: 20150414
  Receipt Date: 20150414
  Transmission Date: 20150821
  Serious: Yes (Other)
  Sender: FDA-Public Use
  Company Number: US-AMGEN-USASP2015034508

PATIENT
  Age: 43 Year
  Sex: Male

DRUGS (4)
  1. VECTIBIX [Suspect]
     Active Substance: PANITUMUMAB
     Indication: RECTAL ADENOCARCINOMA
     Dosage: UNK
     Route: 065
  2. FOLINIC ACID [Concomitant]
     Active Substance: LEUCOVORIN
     Indication: RECTAL ADENOCARCINOMA
     Dosage: UNK
  3. FLUOROURACIL. [Concomitant]
     Active Substance: FLUOROURACIL
     Indication: RECTAL ADENOCARCINOMA
     Dosage: UNK
  4. IRINOTECAN [Concomitant]
     Active Substance: IRINOTECAN
     Indication: RECTAL ADENOCARCINOMA
     Dosage: UNK

REACTIONS (2)
  - Malignant neoplasm progression [Unknown]
  - Metastases to lung [Unknown]
